FAERS Safety Report 7383060-8 (Version None)
Quarter: 2011Q1

REPORT INFORMATION
  Report Type: 
  Country: None (occurrence: None)
  Receive Date: 20110330
  Receipt Date: 20110325
  Transmission Date: 20110831
  Serious: No
  Sender: FDA-Public Use
  Company Number: US-PFIZER INC-2011067144

PATIENT
  Sex: Female

DRUGS (2)
  1. PRISTIQ [Suspect]
     Dosage: 50 MG, UNK
  2. VENLAFAXINE HCL [Suspect]
     Dosage: 75 MG, UNK

REACTIONS (2)
  - FEELING ABNORMAL [None]
  - DRUG INTOLERANCE [None]
